FAERS Safety Report 4834153-8 (Version None)
Quarter: 2005Q4

REPORT INFORMATION
  Report Type: 
  Country: None (occurrence: None)
  Receive Date: 20051122
  Receipt Date: 20051024
  Transmission Date: 20060501
  Serious: Yes (Life-Threatening, Hospitalization)
  Sender: FDA-Public Use
  Company Number: JP-AVENTIS-200513104JP

PATIENT
  Age: 69 Year
  Sex: Male
  Weight: 58.1 kg

DRUGS (7)
  1. TAXOTERE [Suspect]
     Indication: LUNG ADENOCARCINOMA STAGE IV
     Route: 041
     Dates: start: 20051012, end: 20051012
  2. KADIAN [Concomitant]
     Indication: CANCER PAIN
     Route: 048
     Dates: start: 20051008
  3. GLIMICRON [Concomitant]
     Indication: DIABETES MELLITUS NON-INSULIN-DEPENDENT
     Route: 048
  4. BASEN [Concomitant]
     Indication: DIABETES MELLITUS NON-INSULIN-DEPENDENT
     Route: 048
  5. LOXONIN [Concomitant]
     Indication: CANCER PAIN
     Route: 048
     Dates: start: 20050513
  6. MUCOSTA [Concomitant]
     Indication: GASTRITIS
     Route: 048
     Dates: start: 20050620
  7. MAGLAX [Concomitant]
     Indication: CONSTIPATION
     Route: 048
     Dates: start: 20050709

REACTIONS (2)
  - ATRIOVENTRICULAR BLOCK COMPLETE [None]
  - BRADYCARDIA [None]
